FAERS Safety Report 19009882 (Version 1)
Quarter: 2021Q1

REPORT INFORMATION
  Report Type: Spontaneous
  Country: DE (occurrence: DE)
  Receive Date: 20210316
  Receipt Date: 20210316
  Transmission Date: 20210420
  Serious: Yes (Death, Life-Threatening, Hospitalization)
  Sender: FDA-Public Use
  Company Number: DE-TEVA-2021-DE-1888154

PATIENT
  Age: 69 Year
  Sex: Male

DRUGS (11)
  1. PANTOPRAZOL [Concomitant]
     Active Substance: PANTOPRAZOLE SODIUM
     Dosage: 40 MILLIGRAM DAILY; 1?0?0?0
     Route: 048
  2. COLECALCIFEROL (VITAMIN D) [Concomitant]
     Active Substance: CHOLECALCIFEROL
     Dosage: 20,000 IU / WEEK, 1X, CAPSULES
     Route: 048
  3. CANDESARTAN. [Concomitant]
     Active Substance: CANDESARTAN
     Dosage: 32 MILLIGRAM DAILY; 1?0?1?0
     Route: 048
  4. HYDROMORPHON [Concomitant]
     Active Substance: HYDROMORPHONE
     Dosage: 48 MILLIGRAM DAILY; 16 MG, 1?1?1?0, SUSTAINED?RELEASE CAPSULES
     Route: 048
  5. BISOPROLOL [Suspect]
     Active Substance: BISOPROLOL
     Dosage: 2.5 MILLIGRAM DAILY; 1?0?0?0
     Route: 048
  6. EZETIMIB [Concomitant]
     Active Substance: EZETIMIBE
     Dosage: 10 MILLIGRAM DAILY;  0?0?1?0
     Route: 048
  7. ATORVASTATIN [Concomitant]
     Active Substance: ATORVASTATIN
     Dosage: 40 MILLIGRAM DAILY; 0?0?1?0
     Route: 048
  8. AMLODIPIN [Concomitant]
     Active Substance: AMLODIPINE BESYLATE
     Dosage: 10 MILLIGRAM DAILY; 1?0?1?0
     Route: 048
  9. SITAGLIPTIN [Concomitant]
     Active Substance: SITAGLIPTIN
     Dosage: 50 MILLIGRAM DAILY; 1?0?0?0
     Route: 048
  10. ACETYLSALICYLSAEURE [Concomitant]
     Active Substance: ASPIRIN
     Dosage: 100 MILLIGRAM DAILY; 1?0?0?0
     Route: 048
  11. IBUPROFEN. [Concomitant]
     Active Substance: IBUPROFEN
     Dosage: 1200 MILLIGRAM DAILY; 0?1?1?0
     Route: 048

REACTIONS (6)
  - General physical health deterioration [Unknown]
  - Depressed level of consciousness [Unknown]
  - Bradycardia [Unknown]
  - Cardiogenic shock [Unknown]
  - Acute respiratory failure [Unknown]
  - Hypotension [Unknown]
